FAERS Safety Report 5882480-8 (Version None)
Quarter: 2008Q3

REPORT INFORMATION
  Report Type: 
  Country: None (occurrence: None)
  Receive Date: 20080913
  Receipt Date: 20080806
  Transmission Date: 20090109
  Serious: No
  Sender: FDA-Public Use
  Company Number: US-ABBOTT-08P-163-0469287-00

PATIENT
  Sex: Female
  Weight: 131.66 kg

DRUGS (5)
  1. HUMIRA [Suspect]
     Indication: PSORIATIC ARTHROPATHY
     Route: 058
     Dates: start: 20080401
  2. HUMIRA [Suspect]
     Indication: PSORIASIS
  3. HYDROCODONE BITARTRATE [Concomitant]
     Indication: PAIN
     Dosage: 7.5MG/200MG AS NEEDED
     Route: 048
     Dates: start: 20070101
  4. TORSEMIDE [Concomitant]
     Indication: DIURETIC THERAPY
     Dosage: 2-20MG PILLS TWICE A DAY
     Route: 048
     Dates: start: 20040101
  5. POTASSIUM CHLORIDE [Concomitant]
     Indication: BLOOD POTASSIUM
     Dosage: 2-20MG TABLETS 4 TIMES A DAY
     Route: 048
     Dates: start: 20070101

REACTIONS (3)
  - INJECTION SITE HAEMATOMA [None]
  - INJECTION SITE PAIN [None]
  - OEDEMA PERIPHERAL [None]
